FAERS Safety Report 5002623-8 (Version None)
Quarter: 2006Q2

REPORT INFORMATION
  Report Type: 
  Country: None (occurrence: None)
  Receive Date: 20060510
  Receipt Date: 20050610
  Transmission Date: 20061013
  Serious: Yes (Hospitalization, Other)
  Sender: FDA-Public Use
  Company Number: 2005BH000585

PATIENT
  Sex: Male

DRUGS (9)
  1. ATIVAN [Suspect]
     Dosage: SEE IMAGE
     Dates: start: 20050222, end: 20050222
  2. ATIVAN [Suspect]
     Dosage: SEE IMAGE
     Dates: start: 20050223, end: 20050223
  3. ATIVAN [Suspect]
     Dosage: SEE IMAGE
     Dates: start: 20050224, end: 20050224
  4. ATIVAN [Suspect]
     Dosage: SEE IMAGE
     Dates: start: 20050225, end: 20050225
  5. ATIVAN [Suspect]
     Dosage: SEE IMAGE
     Dates: start: 20050226, end: 20050228
  6. FENTRINOL (FENTRINOL) [Suspect]
  7. RISPERDAL [Concomitant]
  8. ESCITALOPRAM OXALATE [Concomitant]
  9. METHOTRIMEPRAZINE [Concomitant]

REACTIONS (4)
  - INFLUENZA [None]
  - INSOMNIA [None]
  - NIGHTMARE [None]
  - SUICIDAL IDEATION [None]
